FAERS Safety Report 25134171 (Version 5)
Quarter: 2025Q4

REPORT INFORMATION
  Report Type: Report from Study
  Country: KR (occurrence: KR)
  Receive Date: 20250328
  Receipt Date: 20251030
  Transmission Date: 20260118
  Serious: No
  Sender: SUNOVION
  Company Number: KR-ZBN-001-PMS-S01038

PATIENT
  Sex: Male
  Weight: 81.3 kg

DRUGS (7)
  1. ESLICARBAZEPINE ACETATE [Suspect]
     Active Substance: ESLICARBAZEPINE ACETATE
     Indication: Epilepsy
     Dosage: 200 MILLIGRAM, QD
     Route: 048
     Dates: start: 20241209, end: 20250112
  2. ESLICARBAZEPINE ACETATE [Suspect]
     Active Substance: ESLICARBAZEPINE ACETATE
     Dosage: 400 MILLIGRAM, QD
     Route: 048
     Dates: start: 20250113, end: 20250307
  3. ESLICARBAZEPINE ACETATE [Suspect]
     Active Substance: ESLICARBAZEPINE ACETATE
     Dosage: 200 MILLIGRAM, QD
     Route: 048
     Dates: start: 20250308, end: 20250310
  4. ESLICARBAZEPINE ACETATE [Suspect]
     Active Substance: ESLICARBAZEPINE ACETATE
     Dosage: 150 MILLIGRAM, QD
     Route: 048
     Dates: start: 20250311, end: 20250313
  5. LACOSAMIDE [Concomitant]
     Active Substance: LACOSAMIDE
     Indication: Epilepsy
     Dosage: 150 MILLIGRAM, BID
     Route: 048
     Dates: start: 20230111
  6. DEPAKOTE ER [Concomitant]
     Active Substance: DIVALPROEX SODIUM
     Indication: Epilepsy
     Dosage: 500 MILLIGRAM, BID
     Route: 048
     Dates: start: 20161221
  7. Whanin clonazepam [Concomitant]
     Indication: Epilepsy
     Dosage: 0.5 MILLIGRAM, BID
     Route: 048
     Dates: start: 20161208

REACTIONS (3)
  - Propulsive gait [Recovered/Resolved]
  - Drug titration error [Recovered/Resolved]
  - Underdose [Recovered/Resolved]

NARRATIVE: CASE EVENT DATE: 20241201
